FAERS Safety Report 5249710-7 (Version None)
Quarter: 2007Q1

REPORT INFORMATION
  Report Type: 
  Country: None (occurrence: None)
  Receive Date: 20070207
  Receipt Date: 20070126
  Transmission Date: 20070707
  Serious: Yes (Life-Threatening, Hospitalization, Disabling)
  Sender: FDA-Public Use
  Company Number: 2002-03-1008

PATIENT
  Age: 46 Year
  Sex: Female
  Weight: 74.3899 kg

DRUGS (8)
  1. PEG-INTRON [Suspect]
     Indication: HEPATITIS C
     Dosage: 96 MCG;QW;SC
     Route: 058
     Dates: start: 20011123, end: 20020208
  2. REBETOL [Suspect]
     Indication: HEPATITIS C
     Dosage: SEE IMAGE
     Route: 048
     Dates: start: 20011123, end: 20020215
  3. ZOLOFT [Suspect]
     Indication: DEPRESSION
     Dosage: 100 MG;QD;PO
     Route: 048
  4. ATENOLOL [Concomitant]
  5. NEXIUM [Concomitant]
  6. PREMARIN [Concomitant]
  7. PRILOSEC [Concomitant]
  8. NORVASC [Concomitant]

REACTIONS (19)
  - ABDOMINAL PAIN [None]
  - ABDOMINAL RIGIDITY [None]
  - ALANINE AMINOTRANSFERASE ABNORMAL [None]
  - ASPARTATE AMINOTRANSFERASE ABNORMAL [None]
  - BLOOD GLUCOSE DECREASED [None]
  - BLOOD TEST ABNORMAL [None]
  - BRONCHITIS [None]
  - CHEST PAIN [None]
  - CHROMATURIA [None]
  - COUGH [None]
  - DIZZINESS [None]
  - DRY SKIN [None]
  - EXPOSURE TO TOXIC AGENT [None]
  - HAEMODIALYSIS [None]
  - HEPATITIS C [None]
  - INJURY [None]
  - IRRITABILITY [None]
  - RENAL FAILURE [None]
  - SUICIDE ATTEMPT [None]
